FAERS Safety Report 6696625-3 (Version None)
Quarter: 2010Q2

REPORT INFORMATION
  Report Type: 
  Country: None (occurrence: None)
  Receive Date: 20100426
  Receipt Date: 20100416
  Transmission Date: 20101027
  Serious: Yes (Disabling)
  Sender: FDA-Public Use
  Company Number: B0648634A

PATIENT
  Sex: Male

DRUGS (5)
  1. SERETIDE [Suspect]
     Indication: CHRONIC OBSTRUCTIVE PULMONARY DISEASE
     Dosage: 500MCG PER DAY
     Route: 055
     Dates: start: 20091026, end: 20091124
  2. MUCODYNE [Concomitant]
     Indication: CHRONIC OBSTRUCTIVE PULMONARY DISEASE
     Dosage: 1500MG PER DAY
     Route: 048
  3. UNKNOWN DRUG [Concomitant]
     Indication: CHRONIC OBSTRUCTIVE PULMONARY DISEASE
     Dosage: 30MG PER DAY
     Route: 048
  4. ALOSENN [Concomitant]
     Dosage: .5MG PER DAY
     Route: 048
  5. ZANTAC [Concomitant]
     Dosage: 150MG PER DAY
     Route: 048

REACTIONS (2)
  - PRURITUS [None]
  - RASH GENERALISED [None]
